FAERS Safety Report 10786026 (Version 2)
Quarter: 2017Q3

REPORT INFORMATION
  Report Type: Spontaneous
  Country: US (occurrence: US)
  Receive Date: 20150211
  Receipt Date: 20170709
  Transmission Date: 20171127
  Serious: No
  Sender: FDA-Public Use
  Company Number: US-009507513-1502USA004790

PATIENT
  Age: 48 Year
  Sex: Female

DRUGS (1)
  1. DULERA [Suspect]
     Active Substance: FORMOTEROL FUMARATE DIHYDRATE\MOMETASONE FUROATE
     Indication: ASTHMA
     Dosage: TWO PUFFS TWICE DAILY
     Route: 048
     Dates: start: 201501

REACTIONS (6)
  - Feeling cold [Unknown]
  - Incorrect dose administered [Unknown]
  - Product container issue [Unknown]
  - Headache [Unknown]
  - Product quality issue [Unknown]
  - Incorrect route of drug administration [Unknown]

NARRATIVE: CASE EVENT DATE: 2015
